FAERS Safety Report 17569400 (Version 1)
Quarter: 2020Q1

REPORT INFORMATION
  Report Type: Spontaneous
  Country: FR (occurrence: FR)
  Receive Date: 20200322
  Receipt Date: 20200322
  Transmission Date: 20200409
  Serious: Yes (Other)
  Sender: FDA-Public Use
  Company Number: FR-ABBVIE-20K-056-3331902-00

PATIENT
  Age: 85 Year
  Sex: Female

DRUGS (1)
  1. IMBRUVICA [Suspect]
     Active Substance: IBRUTINIB
     Indication: CHRONIC LYMPHOCYTIC LEUKAEMIA
     Route: 048
     Dates: start: 20171002, end: 20200301

REACTIONS (11)
  - Lymphocyte percentage decreased [Unknown]
  - Red blood cell abnormality [Unknown]
  - Haemoglobin decreased [Unknown]
  - White blood cell disorder [Unknown]
  - Platelet count decreased [Unknown]
  - Haematocrit decreased [Unknown]
  - Haematoma [Unknown]
  - Skin discolouration [Recovered/Resolved]
  - Off label use [Unknown]
  - Petechiae [Unknown]
  - Incorrect dose administered [Unknown]

NARRATIVE: CASE EVENT DATE: 20171002
